FAERS Safety Report 14587802 (Version 4)
Quarter: 2019Q3

REPORT INFORMATION
  Report Type: Spontaneous
  Country: US (occurrence: US)
  Receive Date: 20180301
  Receipt Date: 20190918
  Transmission Date: 20191004
  Serious: Yes (Other)
  Sender: FDA-Public Use
  Company Number: US-ASTRAZENECA-2018SE25438

PATIENT
  Age: 20664 Day
  Sex: Female
  Weight: 75.3 kg

DRUGS (41)
  1. VALCYTE [Concomitant]
     Active Substance: VALGANCICLOVIR HYDROCHLORIDE
  2. ESZOPICLONE. [Concomitant]
     Active Substance: ESZOPICLONE
  3. ZOCOR [Concomitant]
     Active Substance: SIMVASTATIN
  4. PREDNISONE. [Concomitant]
     Active Substance: PREDNISONE
  5. AMLODIPINE [Concomitant]
     Active Substance: AMLODIPINE BESYLATE
  6. OMEGA [Concomitant]
     Active Substance: CONVALLARIA MAJALIS\CRATAEGUS LAEVIGATA LEAF\PROXYPHYLLINE
  7. ALINIA [Concomitant]
     Active Substance: NITAZOXANIDE
  8. NEXIUM [Suspect]
     Active Substance: ESOMEPRAZOLE MAGNESIUM
     Dosage: GENERIC
     Route: 065
  9. KEFLEX/ CELEX [Concomitant]
  10. DICYCLOMINE [Concomitant]
     Active Substance: DICYCLOMINE HYDROCHLORIDE
  11. MESALAMINE. [Concomitant]
     Active Substance: MESALAMINE
  12. NEXIUM [Suspect]
     Active Substance: ESOMEPRAZOLE MAGNESIUM
     Route: 048
  13. PROCRIT [Concomitant]
     Active Substance: ERYTHROPOIETIN
  14. SODIUM BICARBONATE. [Concomitant]
     Active Substance: SODIUM BICARBONATE
  15. AMOXICILLIN. [Concomitant]
     Active Substance: AMOXICILLIN
  16. MAGNESIUM OXIDE. [Concomitant]
     Active Substance: MAGNESIUM OXIDE
  17. NIFEDIPINE. [Concomitant]
     Active Substance: NIFEDIPINE
  18. CELLCEPT [Concomitant]
     Active Substance: MYCOPHENOLATE MOFETIL\MYCOPHENOLATE MOFETIL HYDROCHLORIDE
  19. VIGAMOX [Concomitant]
     Active Substance: MOXIFLOXACIN HYDROCHLORIDE
  20. NEXIUM [Suspect]
     Active Substance: ESOMEPRAZOLE MAGNESIUM
     Route: 048
     Dates: start: 200002, end: 201609
  21. CITALOPRAM/ CELEXA [Concomitant]
  22. METRONIDAZOLE. [Concomitant]
     Active Substance: METRONIDAZOLE
  23. LISINOPRIL. [Concomitant]
     Active Substance: LISINOPRIL
  24. CALCIUM CARBONATE. [Concomitant]
     Active Substance: CALCIUM CARBONATE
  25. BENZONATATE. [Concomitant]
     Active Substance: BENZONATATE
  26. TACROLIMUS. [Concomitant]
     Active Substance: TACROLIMUS
  27. NIFEREX [Concomitant]
  28. NEXIUM [Suspect]
     Active Substance: ESOMEPRAZOLE MAGNESIUM
     Route: 048
     Dates: start: 20160815
  29. CALCITRIOL. [Concomitant]
     Active Substance: CALCITRIOL
  30. ATORVASTATIN [Concomitant]
     Active Substance: ATORVASTATIN
  31. CRESTOR [Concomitant]
     Active Substance: ROSUVASTATIN CALCIUM
  32. LOSARTAN. [Concomitant]
     Active Substance: LOSARTAN
  33. ACETAMINOPHEN. [Concomitant]
     Active Substance: ACETAMINOPHEN
  34. HYDROCODONE [Concomitant]
     Active Substance: HYDROCODONE
  35. ONDANSETRON [Concomitant]
     Active Substance: ONDANSETRON
  36. ALPRAZOLAM. [Concomitant]
     Active Substance: ALPRAZOLAM
  37. CLONAZEPAM. [Concomitant]
     Active Substance: CLONAZEPAM
  38. EYLEA [Concomitant]
     Active Substance: AFLIBERCEPT
  39. ERGOCALCIFEROL. [Concomitant]
     Active Substance: ERGOCALCIFEROL
  40. VITAMIN D3 [Concomitant]
     Active Substance: CHOLECALCIFEROL
  41. AZITHROMYCIN ANHYDROUS. [Concomitant]
     Active Substance: AZITHROMYCIN ANHYDROUS

REACTIONS (7)
  - Chronic kidney disease [Unknown]
  - Nephrogenic anaemia [Unknown]
  - Renal failure [Recovered/Resolved]
  - Renal impairment [Unknown]
  - Hyperparathyroidism secondary [Unknown]
  - End stage renal disease [Unknown]
  - Acute kidney injury [Unknown]

NARRATIVE: CASE EVENT DATE: 20160120
